FAERS Safety Report 25138973 (Version 1)
Quarter: 2025Q1

REPORT INFORMATION
  Report Type: Spontaneous
  Country: JP (occurrence: JP)
  Receive Date: 20250331
  Receipt Date: 20250331
  Transmission Date: 20250409
  Serious: Yes (Death)
  Sender: EISAI
  Company Number: JP-Eisai-202416893_LEN-EC_P_1

PATIENT
  Age: 46 Year
  Sex: Female

DRUGS (2)
  1. LENVATINIB [Suspect]
     Active Substance: LENVATINIB
     Indication: Endometrial cancer
  2. PEMBROLIZUMAB [Concomitant]
     Active Substance: PEMBROLIZUMAB
     Indication: Endometrial cancer

REACTIONS (2)
  - Death [Fatal]
  - Malignant neoplasm progression [Unknown]
